APPROVED DRUG PRODUCT: THAM
Active Ingredient: TROMETHAMINE
Strength: 18GM/500ML (3.6GM/100ML) **Federal Register determination that product was not discontinued or withdrawn for safety or effectiveness reasons**
Dosage Form/Route: SOLUTION;INJECTION
Application: N013025 | Product #002 | TE Code: AP
Applicant: HOSPIRA INC
Approved: Approved Prior to Jan 1, 1982 | RLD: Yes | RS: Yes | Type: RX